FAERS Safety Report 9469888 (Version 8)
Quarter: 2014Q2

REPORT INFORMATION
  Report Type: Spontaneous
  Country: US (occurrence: US)
  Receive Date: 20130822
  Receipt Date: 20140619
  Transmission Date: 20141212
  Serious: No
  Sender: FDA-Public Use
  Company Number: US-009507513-1308USA006964

PATIENT
  Age: 28 Year
  Sex: Female
  Weight: 85.71 kg

DRUGS (3)
  1. IMPLANON [Suspect]
     Indication: CONTRACEPTION
     Dosage: INSERTED IN UPPER LEFT ARM. PRODUCT WILL BE STOPPED ON 12-JAN-2015
     Route: 030
     Dates: start: 20120112
  2. AMOXICILLIN [Concomitant]
  3. METROGEL (METRONIDAZOLE) [Concomitant]

REACTIONS (6)
  - Device deployment issue [Not Recovered/Not Resolved]
  - Unintended pregnancy [Recovered/Resolved]
  - Medical device complication [Recovered/Resolved]
  - Incorrect route of drug administration [Unknown]
  - Drug dose omission [Unknown]
  - Device difficult to use [Not Recovered/Not Resolved]
